FAERS Safety Report 5385945-0 (Version None)
Quarter: 2007Q3

REPORT INFORMATION
  Report Type: 
  Country: None (occurrence: None)
  Receive Date: 20070710
  Receipt Date: 20070629
  Transmission Date: 20080115
  Serious: Yes (Death)
  Sender: FDA-Public Use
  Company Number: 2007-02003

PATIENT
  Age: 62 Year
  Sex: Male
  Weight: 52.7 kg

DRUGS (4)
  1. VELCADE [Suspect]
     Indication: MULTIPLE MYELOMA
     Dosage: SEE IMAGE
     Route: 042
     Dates: start: 20061227, end: 20070202
  2. VELCADE [Suspect]
     Indication: MULTIPLE MYELOMA
     Dosage: SEE IMAGE
     Route: 042
     Dates: start: 20061128
  3. ADRIAMYCIN PFS [Concomitant]
  4. DEXAMETHASONE 0.5MG TAB [Concomitant]

REACTIONS (4)
  - DRUG DOSE OMISSION [None]
  - HYPERBILIRUBINAEMIA [None]
  - NEUROPATHY [None]
  - THROMBOCYTOPENIA [None]
